FAERS Safety Report 7251126-9 (Version None)
Quarter: 2011Q1

REPORT INFORMATION
  Report Type: 
  Country: None (occurrence: None)
  Receive Date: 20110128
  Receipt Date: 20110114
  Transmission Date: 20110831
  Serious: Yes (Other)
  Sender: FDA-Public Use
  Company Number: DE-CELGENEUS-062-21880-11012090

PATIENT

DRUGS (6)
  1. REVLIMID [Suspect]
     Indication: PROSTATE CANCER
     Route: 048
  2. BISPHOSPHONATES [Suspect]
     Indication: PROSTATE CANCER
     Route: 065
  3. DEXAMETHASONE [Concomitant]
     Route: 065
  4. ETORICOXIB [Concomitant]
     Route: 065
  5. TREOSULFAN [Concomitant]
     Route: 065
  6. PIOGLITAZONE [Concomitant]
     Route: 065

REACTIONS (1)
  - OSTEONECROSIS [None]
